FAERS Safety Report 8119410-4 (Version None)
Quarter: 2012Q1

REPORT INFORMATION
  Report Type: 
  Country: None (occurrence: None)
  Receive Date: 20120203
  Receipt Date: 20120126
  Transmission Date: 20120608
  Serious: Yes (Other)
  Sender: FDA-Public Use
  Company Number: 2012SP005042

PATIENT
  Sex: Male

DRUGS (4)
  1. PEG-INTRON [Suspect]
     Indication: HEPATITIS C
     Dates: start: 20020101
  2. PEGASYS [Suspect]
     Indication: HEPATITIS C
     Dates: start: 20050401
  3. RIBAVIRIN [Suspect]
     Indication: HEPATITIS C
     Dates: start: 20050401
  4. RIBAVIRIN [Suspect]
     Indication: HEPATITIS C
     Dates: start: 20020101

REACTIONS (6)
  - PRURITUS [None]
  - WHITE BLOOD CELL COUNT DECREASED [None]
  - RED BLOOD CELL COUNT DECREASED [None]
  - BASEDOW'S DISEASE [None]
  - PLATELET COUNT DECREASED [None]
  - DIABETES MELLITUS [None]
